FAERS Safety Report 14598349 (Version 1)
Quarter: 2018Q1

REPORT INFORMATION
  Report Type: Spontaneous
  Country: US (occurrence: US)
  Receive Date: 20180305
  Receipt Date: 20180305
  Transmission Date: 20180509
  Serious: No
  Sender: FDA-Public Use
  Company Number: US-PFIZER INC-2018091640

PATIENT
  Sex: Male
  Weight: 118 kg

DRUGS (1)
  1. GABAPENTIN. [Suspect]
     Active Substance: GABAPENTIN
     Dosage: TAKING 10 PILLS A DAY, 1000MG

REACTIONS (1)
  - Drug ineffective [Unknown]
